FAERS Safety Report 9494984 (Version 1)
Quarter: 2013Q3

REPORT INFORMATION
  Report Type: Spontaneous
  Country: US (occurrence: None)
  Receive Date: 20130830
  Receipt Date: 20130830
  Transmission Date: 20140515
  Serious: Yes (Other)
  Sender: FDA-Public Use
  Company Number: None

PATIENT
  Sex: Female
  Weight: 89 kg

DRUGS (3)
  1. LEVETIRACETAM [Suspect]
     Indication: CONVULSION
     Route: 048
  2. DEPAKOTE [Concomitant]
  3. TEGRETOL [Concomitant]

REACTIONS (2)
  - Convulsion [None]
  - Product substitution issue [None]
